FAERS Safety Report 15211886 (Version 2)
Quarter: 2018Q3

REPORT INFORMATION
  Report Type: Spontaneous
  Country: BR (occurrence: BR)
  Receive Date: 20180729
  Receipt Date: 20180906
  Transmission Date: 20181010
  Serious: Yes (Hospitalization)
  Sender: FDA-Public Use
  Company Number: PHHY2018BR055002

PATIENT
  Sex: Female
  Weight: 102 kg

DRUGS (1)
  1. CILODEX [Suspect]
     Active Substance: CIPROFLOXACIN\DEXAMETHASONE
     Indication: CONJUNCTIVITIS BACTERIAL
     Dosage: UNK UNK, Q3H
     Route: 047

REACTIONS (3)
  - Eye irritation [Unknown]
  - Wrong drug administered [Unknown]
  - Product packaging issue [Unknown]
